FAERS Safety Report 18972844 (Version 1)
Quarter: 2021Q1

REPORT INFORMATION
  Report Type: Spontaneous
  Country: US (occurrence: US)
  Receive Date: 20210305
  Receipt Date: 20210305
  Transmission Date: 20210420
  Serious: Yes (Other)
  Sender: FDA-Public Use
  Company Number: None

PATIENT
  Age: 74 Year
  Sex: Male
  Weight: 90 kg

DRUGS (3)
  1. LYSINOPRIL HCL 10 MG/12.5MG [Concomitant]
     Active Substance: HYDROCHLOROTHIAZIDE\LISINOPRIL
  2. VITAMIN D [Concomitant]
     Active Substance: VITAMIN D NOS
  3. BAMLANIVIMAB. [Suspect]
     Active Substance: BAMLANIVIMAB
     Indication: COVID-19
     Route: 030

REACTIONS (7)
  - Pain [None]
  - Slow speech [None]
  - Rash [None]
  - Tremor [None]
  - Fatigue [None]
  - Pyrexia [None]
  - Nightmare [None]

NARRATIVE: CASE EVENT DATE: 20210125
